FAERS Safety Report 12318658 (Version 1)
Quarter: 2016Q2

REPORT INFORMATION
  Report Type: Spontaneous
  Country: AT (occurrence: AT)
  Receive Date: 20160429
  Receipt Date: 20160429
  Transmission Date: 20160815
  Serious: Yes (Death)
  Sender: FDA-Public Use
  Company Number: AT-ROXANE LABORATORIES, INC.-2016-RO-00775RO

PATIENT
  Age: 71 Year
  Sex: Male

DRUGS (8)
  1. PANTOPRAZOL [Concomitant]
     Active Substance: PANTOPRAZOLE SODIUM
     Route: 065
  2. NEBIVOLOL. [Concomitant]
     Active Substance: NEBIVOLOL
     Route: 065
  3. XIPAMIDE [Concomitant]
     Active Substance: XIPAMIDE
     Route: 065
  4. ACETYLSALICYLIC ACID [Concomitant]
     Active Substance: ASPIRIN
     Route: 065
  5. AMLODIPINE/VALSARTANE [Concomitant]
     Route: 065
  6. SODIUM HYDROGEN CARBONATE [Concomitant]
     Active Substance: SODIUM BICARBONATE
     Route: 065
  7. TORSEMIDE. [Suspect]
     Active Substance: TORSEMIDE
     Indication: PRODUCT USED FOR UNKNOWN INDICATION
     Route: 065
  8. SIMVASTATIN. [Concomitant]
     Active Substance: SIMVASTATIN
     Route: 065

REACTIONS (1)
  - Pseudoporphyria [Fatal]
